FAERS Safety Report 18816697 (Version 4)
Quarter: 2021Q2

REPORT INFORMATION
  Report Type: Report from Study
  Country: US (occurrence: US)
  Receive Date: 20210201
  Receipt Date: 20210621
  Transmission Date: 20210717
  Serious: No
  Sender: FDA-Public Use
  Company Number: US-BIOVITRUM-2020US6554

PATIENT
  Age: 35 Year
  Sex: Female

DRUGS (9)
  1. KINERET [Suspect]
     Active Substance: ANAKINRA
     Indication: AUTOINFLAMMATORY DISEASE
  2. PROPRANOLOL [Concomitant]
     Active Substance: PROPRANOLOL HYDROCHLORIDE
  3. VALIUM [Concomitant]
     Active Substance: DIAZEPAM
  4. NASAL KETAMINE [Concomitant]
     Route: 045
  5. LUNESTA [Concomitant]
     Active Substance: ESZOPICLONE
  6. DILAUDID [Concomitant]
     Active Substance: HYDROMORPHONE HYDROCHLORIDE
  7. KINERET [Suspect]
     Active Substance: ANAKINRA
     Indication: CRYOPYRIN ASSOCIATED PERIODIC SYNDROME
     Route: 058
     Dates: start: 20201106
  8. KINERET [Suspect]
     Active Substance: ANAKINRA
     Indication: CONNECTIVE TISSUE DISORDER
  9. MEDICAL MARIJUANA [Concomitant]
     Active Substance: CANNABIS SATIVA SUBSP. INDICA TOP

REACTIONS (14)
  - Blister [Unknown]
  - Migraine [Unknown]
  - Tremor [Unknown]
  - Herpes zoster [Unknown]
  - Myalgia [Recovering/Resolving]
  - Pain in extremity [Unknown]
  - Nausea [Recovered/Resolved]
  - Arthralgia [Recovering/Resolving]
  - Pyrexia [Unknown]
  - Symptom recurrence [Unknown]
  - Pain [Unknown]
  - Unevaluable event [Unknown]
  - Injection site pain [Unknown]
  - Off label use [Unknown]

NARRATIVE: CASE EVENT DATE: 202011
